FAERS Safety Report 7778972-7 (Version None)
Quarter: 2011Q3

REPORT INFORMATION
  Report Type: 
  Country: None (occurrence: None)
  Receive Date: 20110926
  Receipt Date: 20110920
  Transmission Date: 20111222
  Serious: Yes (Hospitalization)
  Sender: FDA-Public Use
  Company Number: US-BAYER-2011-043969

PATIENT
  Age: 57 Year
  Sex: Male
  Weight: 118 kg

DRUGS (10)
  1. PRAVASTATIN [Concomitant]
  2. DIOVAN HCT [Concomitant]
  3. METFORMIN HCL [Concomitant]
  4. ATENOLOL [Concomitant]
  5. VERAPAMIL [Concomitant]
  6. EDEX [Concomitant]
     Dosage: UNK INJECTION
     Dates: start: 20110915
  7. HYDROCODONE [Concomitant]
  8. LEVITRA [Suspect]
     Indication: ERECTILE DYSFUNCTION
     Dosage: 20 MG, PRN
  9. AMARYL [Concomitant]
  10. MIRAPEX [Concomitant]

REACTIONS (2)
  - ERECTILE DYSFUNCTION [None]
  - ATRIAL FIBRILLATION [None]
